FAERS Safety Report 9543189 (Version 1)
Quarter: 2013Q3

REPORT INFORMATION
  Report Type: Spontaneous
  Country: US (occurrence: US)
  Receive Date: 20130923
  Receipt Date: 20130923
  Transmission Date: 20140515
  Serious: No
  Sender: FDA-Public Use
  Company Number: US-PURDUE-USA-2012-0093685

PATIENT
  Age: 43 Year
  Sex: Female

DRUGS (1)
  1. DILAUDID TABLET [Suspect]
     Indication: PRODUCT USED FOR UNKNOWN INDICATION
     Route: 065

REACTIONS (1)
  - Respiratory distress [Unknown]
